FAERS Safety Report 10052540 (Version 1)
Quarter: 2014Q1

REPORT INFORMATION
  Report Type: Spontaneous
  Country: US (occurrence: None)
  Receive Date: 20140331
  Receipt Date: 20140331
  Transmission Date: 20141002
  Serious: Yes (Other)
  Sender: FDA-Public Use
  Company Number: SYM-2014-18981

PATIENT
  Age: 76 Year
  Sex: Female

DRUGS (5)
  1. VENLAFAXINE ER [Suspect]
     Indication: CATAPLEXY
     Dosage: 75 MG, 1 IN 1 D
  2. SODIUM OXYBATE [Suspect]
     Indication: CATAPLEXY
     Dosage: 9 GM, 1 IN 1 D
  3. SODIUM OXYBATE [Suspect]
     Indication: HYPERSOMNIA
     Dosage: 9 GM, 1 IN 1 D
  4. FLUOXETINE [Suspect]
     Indication: PRODUCT USED FOR UNKNOWN INDICATION
  5. MODAFINIL (MODAFINIL) (MODAFINIL) [Concomitant]

REACTIONS (10)
  - Somnambulism [None]
  - Sleep-related eating disorder [None]
  - Fall [None]
  - Hypertension [None]
  - Cataplexy [None]
  - Gastroenteritis [None]
  - Vomiting [None]
  - Emotional disorder [None]
  - Hallucination, visual [None]
  - Drug ineffective [None]
